FAERS Safety Report 12540118 (Version 1)
Quarter: 2016Q3

REPORT INFORMATION
  Report Type: Spontaneous
  Country: US (occurrence: US)
  Receive Date: 20160708
  Receipt Date: 20160708
  Transmission Date: 20161109
  Serious: No
  Sender: FDA-Public Use
  Company Number: US-GLAXOSMITHKLINE-US2016094659

PATIENT
  Age: 74 Year
  Sex: Male

DRUGS (2)
  1. SENSODYNE COMPLETE PROTECTION [Suspect]
     Active Substance: STANNOUS FLUORIDE
     Indication: DENTAL CARE
     Dosage: UNK
     Dates: start: 201603
  2. INLYTA [Concomitant]
     Active Substance: AXITINIB
     Indication: PRODUCT USED FOR UNKNOWN INDICATION
     Dosage: UNK

REACTIONS (6)
  - Glossodynia [Not Recovered/Not Resolved]
  - Dysphagia [Unknown]
  - Tongue discolouration [Unknown]
  - Feeding disorder [Not Recovered/Not Resolved]
  - Tongue exfoliation [Not Recovered/Not Resolved]
  - Tongue geographic [Not Recovered/Not Resolved]

NARRATIVE: CASE EVENT DATE: 201605
